FAERS Safety Report 6725829-6 (Version None)
Quarter: 2010Q2

REPORT INFORMATION
  Report Type: 
  Country: None (occurrence: None)
  Receive Date: 20100514
  Receipt Date: 20100505
  Transmission Date: 20101027
  Serious: Yes (Hospitalization, Other)
  Sender: FDA-Public Use
  Company Number: PHHY2010CA04349

PATIENT
  Sex: Male

DRUGS (3)
  1. SANDOSTATIN LAR [Suspect]
     Indication: HEPATIC CIRRHOSIS
     Dosage: 30 MG, QMO
     Route: 030
     Dates: start: 20100122
  2. SANDOSTATIN LAR [Suspect]
     Indication: VARICES OESOPHAGEAL
  3. BLOOD TRANSFUSION, AUXILIARY PRODUCTS [Concomitant]

REACTIONS (7)
  - ASTHENIA [None]
  - FAECAL INCONTINENCE [None]
  - HAEMATOCHEZIA [None]
  - HEPATIC CIRRHOSIS [None]
  - MALAISE [None]
  - MYOCARDIAL INFARCTION [None]
  - OESOPHAGEAL VARICEAL LIGATION [None]
